FAERS Safety Report 7430977-1 (Version None)
Quarter: 2011Q2

REPORT INFORMATION
  Report Type: 
  Country: None (occurrence: None)
  Receive Date: 20110421
  Receipt Date: 20110419
  Transmission Date: 20111010
  Serious: Yes (Death, Other)
  Sender: FDA-Public Use
  Company Number: PHHY2011US31311

PATIENT
  Age: 39 Year
  Sex: Female

DRUGS (3)
  1. AZATHIOPRINE [Suspect]
     Indication: IMMUNOSUPPRESSION
  2. PROGRAF [Suspect]
     Indication: IMMUNOSUPPRESSION
  3. PREDNISONE [Suspect]
     Indication: IMMUNOSUPPRESSION

REACTIONS (6)
  - NAUSEA [None]
  - BLOOD PRESSURE DECREASED [None]
  - ABDOMINAL PAIN [None]
  - PNEUMATOSIS INTESTINALIS [None]
  - ABDOMINAL TENDERNESS [None]
  - VOMITING [None]
